FAERS Safety Report 4364632-1 (Version None)
Quarter: 2004Q2

REPORT INFORMATION
  Report Type: 
  Country: None (occurrence: None)
  Receive Date: 20040521
  Receipt Date: 20040416
  Transmission Date: 20050107
  Serious: Yes (Hospitalization, Other)
  Sender: FDA-Public Use
  Company Number: KII-2004-0010398

PATIENT
  Age: 83 Year
  Sex: Male

DRUGS (4)
  1. OXYCONTIN [Suspect]
  2. OTHER HYPNOTICS AND SEDATIVES) [Suspect]
  3. BENZODIAZEPINE DERIVATIVES [Suspect]
  4. TRAZODONE HCL [Suspect]

REACTIONS (7)
  - BLOOD PRESSURE DIASTOLIC DECREASED [None]
  - HYPERSOMNIA [None]
  - LETHARGY [None]
  - MULTIPLE DRUG OVERDOSE [None]
  - OXYGEN SATURATION DECREASED [None]
  - RESPIRATORY RATE INCREASED [None]
  - VOMITING [None]
